FAERS Safety Report 5474142-6 (Version None)
Quarter: 2007Q3

REPORT INFORMATION
  Report Type: 
  Country: None (occurrence: None)
  Receive Date: 20070830
  Receipt Date: 20070614
  Transmission Date: 20080115
  Serious: Yes (Hospitalization)
  Sender: FDA-Public Use
  Company Number: 200714065US

PATIENT
  Age: 80 Year
  Sex: Female

DRUGS (12)
  1. LASIX [Suspect]
     Indication: BLISTER
     Dosage: 20 MG PO
     Route: 048
     Dates: start: 20070501
  2. LASIX [Suspect]
     Indication: OEDEMA PERIPHERAL
     Dosage: 20 MG PO
     Route: 048
     Dates: start: 20070501
  3. LASIX [Suspect]
     Indication: BLISTER
     Dosage: 40 MG PO
     Route: 048
  4. LASIX [Suspect]
     Indication: OEDEMA PERIPHERAL
     Dosage: 40 MG PO
     Route: 048
  5. LASIX [Suspect]
     Indication: BLISTER
     Dosage: 40 MG PO
     Route: 048
     Dates: start: 20070601
  6. LASIX [Suspect]
     Indication: OEDEMA PERIPHERAL
     Dosage: 40 MG PO
     Route: 048
     Dates: start: 20070601
  7. LASIX [Suspect]
     Indication: BLISTER
     Dosage: 80 MG PO
     Dates: start: 20070601
  8. LASIX [Suspect]
     Indication: OEDEMA PERIPHERAL
     Dosage: 80 MG PO
     Dates: start: 20070601
  9. METOPROLOL [Concomitant]
  10. POTASSIUM CHLORIDE (K-LOR) [Concomitant]
  11. RISPERDAL [Concomitant]
  12. PAIN PILL [Concomitant]

REACTIONS (9)
  - BLISTER [None]
  - CONDITION AGGRAVATED [None]
  - DRUG INEFFECTIVE [None]
  - ERYTHEMA [None]
  - HYPOKINESIA [None]
  - OEDEMA PERIPHERAL [None]
  - PAIN IN EXTREMITY [None]
  - PRURITUS [None]
  - SKIN ULCER [None]
